FAERS Safety Report 9908753 (Version 1)
Quarter: 2014Q1

REPORT INFORMATION
  Report Type: Spontaneous
  Country: US (occurrence: None)
  Receive Date: 20140212
  Receipt Date: 20140212
  Transmission Date: 20141002
  Serious: Yes (Hospitalization)
  Sender: FDA-Public Use
  Company Number: None

PATIENT
  Age: 59 Year
  Sex: Male
  Weight: 81.65 kg

DRUGS (3)
  1. AUGMENTIN [Suspect]
  2. SERTRALINE HYDROCHLORIDE [Concomitant]
  3. SIMVASTATIN [Concomitant]

REACTIONS (1)
  - Drug-induced liver injury [None]
